FAERS Safety Report 16656348 (Version 1)
Quarter: 2019Q3

REPORT INFORMATION
  Report Type: Spontaneous
  Country: US (occurrence: US)
  Receive Date: 20190801
  Receipt Date: 20190801
  Transmission Date: 20191004
  Serious: No
  Sender: FDA-Public Use
  Company Number: US-PACIRA-201800130

PATIENT

DRUGS (2)
  1. BUPIVICAINE [Suspect]
     Active Substance: BUPIVACAINE
     Indication: SURGERY
     Dosage: 30 ML, SINGLE, FREQUENCY : SINGLE
     Route: 065
     Dates: start: 20181015, end: 20181015
  2. EXPAREL [Suspect]
     Active Substance: BUPIVACAINE
     Indication: SURGERY
     Dosage: 266 MG, SINGLE, FREQUENCY : SINGLE
     Route: 065
     Dates: start: 20181015, end: 20181015

REACTIONS (1)
  - Hypoaesthesia [Recovered/Resolved]

NARRATIVE: CASE EVENT DATE: 20181015
